FAERS Safety Report 8201137-1 (Version None)
Quarter: 2012Q1

REPORT INFORMATION
  Report Type: 
  Country: None (occurrence: None)
  Receive Date: 20120307
  Receipt Date: 20120221
  Transmission Date: 20120608
  Serious: Yes (Hospitalization)
  Sender: FDA-Public Use
  Company Number: SAN_000512_2012

PATIENT
  Age: 56 Year
  Sex: Female

DRUGS (2)
  1. METFORMIN HCL [Suspect]
     Indication: TYPE 2 DIABETES MELLITUS
     Dosage: DF
  2. ANGIOTENSIN II ANTAGONISTS [Concomitant]

REACTIONS (9)
  - NAUSEA [None]
  - RESPIRATORY DISTRESS [None]
  - HYPOTHERMIA [None]
  - HAEMODIALYSIS [None]
  - DECREASED APPETITE [None]
  - VOMITING [None]
  - RENAL FAILURE ACUTE [None]
  - LACTIC ACIDOSIS [None]
  - HYPOTENSION [None]
